FAERS Safety Report 9639924 (Version 2)
Quarter: 2013Q4

REPORT INFORMATION
  Report Type: Spontaneous
  Country: US (occurrence: US)
  Receive Date: 20131023
  Receipt Date: 20131023
  Transmission Date: 20140711
  Serious: No
  Sender: FDA-Public Use
  Company Number: US-MYLANLABS-2012S1018666

PATIENT
  Age: 78 Year
  Sex: Female
  Weight: 60.78 kg

DRUGS (16)
  1. CARVEDILOL TABLETS [Suspect]
     Indication: BLOOD PRESSURE INCREASED
     Route: 048
     Dates: start: 2008, end: 20120907
  2. LOSARTAN [Suspect]
     Dates: end: 20120901
  3. AMLODIPINE [Suspect]
     Dates: end: 20120901
  4. CELEBREX [Concomitant]
  5. LIDODERM PATCH [Concomitant]
     Route: 062
  6. ASMANEX [Concomitant]
  7. LUNESTA [Concomitant]
  8. TRAZODONE [Concomitant]
  9. PLAVIX [Concomitant]
  10. ZETIA [Concomitant]
  11. ACYCLOVIR [Concomitant]
     Dates: start: 201103
  12. FISH OIL [Concomitant]
     Dates: start: 201103
  13. NASOCORT [Concomitant]
     Indication: RHINITIS
     Dates: start: 201103
  14. CALCIUM [Concomitant]
     Dates: start: 201103
  15. CENTRUM SILVER [Concomitant]
     Dates: start: 201103
  16. DEXILANT [Concomitant]
     Dates: start: 201103

REACTIONS (11)
  - Syncope [Recovered/Resolved]
  - Fatigue [Recovered/Resolved]
  - Somnolence [Recovered/Resolved]
  - Lethargy [Recovered/Resolved]
  - Muscle spasms [Recovered/Resolved]
  - Nausea [Recovered/Resolved]
  - Vomiting [Recovered/Resolved]
  - Pain in extremity [Recovered/Resolved]
  - Decreased appetite [Recovered/Resolved]
  - Feeling hot [Recovered/Resolved]
  - Hyperhidrosis [Recovered/Resolved]
